FAERS Safety Report 23521453 (Version 1)
Quarter: 2024Q1

REPORT INFORMATION
  Report Type: Spontaneous
  Country: ES (occurrence: ES)
  Receive Date: 20240214
  Receipt Date: 20240214
  Transmission Date: 20240410
  Serious: Yes (Death, Other)
  Sender: FDA-Public Use
  Company Number: ES-ASTELLAS-2024US004273

PATIENT
  Age: 65 Year
  Sex: Male

DRUGS (1)
  1. ENFORTUMAB VEDOTIN [Suspect]
     Active Substance: ENFORTUMAB VEDOTIN
     Indication: Bladder cancer
     Dosage: UNK UNK, CYCLIC (D1 AND D8)
     Route: 065

REACTIONS (2)
  - Catarrh [Fatal]
  - Septic shock [Fatal]

NARRATIVE: CASE EVENT DATE: 20240120
